FAERS Safety Report 6980734-5 (Version None)
Quarter: 2010Q3

REPORT INFORMATION
  Report Type: 
  Country: None (occurrence: None)
  Receive Date: 20100914
  Receipt Date: 20100907
  Transmission Date: 20110219
  Serious: Yes (Hospitalization)
  Sender: FDA-Public Use
  Company Number: US-SANOFI-AVENTIS-2009SA006248

PATIENT
  Age: 75 Year
  Sex: Female
  Weight: 55.3 kg

DRUGS (3)
  1. OXALIPLATIN [Suspect]
     Route: 042
     Dates: start: 20091123, end: 20091123
  2. FLUOROURACIL [Suspect]
     Route: 042
     Dates: start: 20091123, end: 20091123
  3. LEUCOVORIN CALCIUM [Suspect]
     Route: 042
     Dates: start: 20091123, end: 20091123

REACTIONS (1)
  - CIRCULATORY COLLAPSE [None]
